FAERS Safety Report 17988218 (Version 1)
Quarter: 2020Q3

REPORT INFORMATION
  Report Type: Spontaneous
  Country: US (occurrence: US)
  Receive Date: 20200707
  Receipt Date: 20200707
  Transmission Date: 20201103
  Serious: No
  Sender: FDA-Public Use
  Company Number: US-TARO-2020TAR00564

PATIENT

DRUGS (1)
  1. BETAMETHASONE DIPROPIONATE LOTION (AUGMENTED) USP 0.05% [Suspect]
     Active Substance: BETAMETHASONE DIPROPIONATE
     Indication: PSORIASIS
     Dosage: UNK, BID
     Route: 061
     Dates: start: 20191022

REACTIONS (2)
  - Ocular hyperaemia [Recovering/Resolving]
  - Accidental exposure to product [Unknown]

NARRATIVE: CASE EVENT DATE: 20200228
